FAERS Safety Report 5205786-4 (Version None)
Quarter: 2007Q1

REPORT INFORMATION
  Report Type: 
  Country: None (occurrence: None)
  Receive Date: 20070108
  Receipt Date: 20070108
  Transmission Date: 20070707
  Serious: Yes (Other)
  Sender: FDA-Public Use
  Company Number: None

PATIENT
  Sex: Female

DRUGS (2)
  1. AVASTIN [Suspect]
     Indication: PRIMITIVE NEUROECTODERMAL TUMOUR
     Dosage: 1007 MG EVERY 2 WEEKS IV DRIP
     Route: 041
     Dates: start: 20061102, end: 20061222
  2. AVASTIN [Suspect]
     Indication: RENAL NEOPLASM
     Dosage: 1007 MG EVERY 2 WEEKS IV DRIP
     Route: 041
     Dates: start: 20061102, end: 20061222

REACTIONS (1)
  - BLINDNESS [None]
